FAERS Safety Report 6126681-2 (Version None)
Quarter: 2009Q1

REPORT INFORMATION
  Report Type: 
  Country: None (occurrence: None)
  Receive Date: 20090320
  Receipt Date: 20090311
  Transmission Date: 20090719
  Serious: Yes (Other)
  Sender: FDA-Public Use
  Company Number: BR-PFIZER INC-2009178493

PATIENT

DRUGS (6)
  1. ATORVASTATIN CALCIUM [Suspect]
     Indication: BLOOD CHOLESTEROL
     Dosage: 10 MG, 1X/DAY
     Route: 048
     Dates: end: 20080101
  2. CRESTOR [Suspect]
     Dosage: UNK
     Dates: start: 20080101
  3. SUSTRATE [Concomitant]
     Dosage: UNK
  4. PLAVIX [Concomitant]
     Dosage: UNK
  5. ATACAND [Concomitant]
     Dosage: UNK
  6. CIPROFIBRATE [Concomitant]
     Dosage: UNK

REACTIONS (4)
  - MYALGIA [None]
  - NAUSEA [None]
  - STENT PLACEMENT [None]
  - WEIGHT DECREASED [None]
